FAERS Safety Report 10328073 (Version 7)
Quarter: 2015Q2

REPORT INFORMATION
  Report Type: Report from Study
  Country: BE (occurrence: BE)
  Receive Date: 20140721
  Receipt Date: 20150409
  Transmission Date: 20150821
  Serious: Yes (Hospitalization, Other)
  Sender: FDA-Public Use
  Company Number: BE-JNJFOC-20140502638

PATIENT
  Age: 76 Year
  Sex: Male
  Weight: 107 kg

DRUGS (26)
  1. ABIRATERONE ACETATE [Suspect]
     Active Substance: ABIRATERONE ACETATE
     Indication: PROSTATE CANCER METASTATIC
     Route: 048
     Dates: start: 20140908, end: 20140918
  2. CRESTOR [Concomitant]
     Active Substance: ROSUVASTATIN CALCIUM
     Route: 065
  3. GLUCOPHAGE [Concomitant]
     Active Substance: METFORMIN HYDROCHLORIDE
     Dosage: 850
     Route: 065
  4. PENICILLIN [Concomitant]
     Active Substance: PENICILLIN
     Route: 042
     Dates: start: 20140502, end: 20140512
  5. ALDACTONE [Concomitant]
     Active Substance: SPIRONOLACTONE
     Route: 048
     Dates: start: 20140508, end: 20140512
  6. ABIRATERONE ACETATE [Suspect]
     Active Substance: ABIRATERONE ACETATE
     Indication: PROSTATE CANCER METASTATIC
     Route: 048
     Dates: start: 20140812, end: 20140907
  7. NOVOMIX [Concomitant]
     Active Substance: INSULIN ASPART
     Dosage: 50-35-50
     Route: 065
  8. MEDROL [Suspect]
     Active Substance: METHYLPREDNISOLONE
     Indication: PROSTATE CANCER METASTATIC
     Route: 048
     Dates: start: 20140212, end: 20141124
  9. MEDROL [Suspect]
     Active Substance: METHYLPREDNISOLONE
     Indication: PROSTATE CANCER METASTATIC
     Route: 048
     Dates: start: 20141125
  10. INSULIN [Concomitant]
     Active Substance: INSULIN NOS
     Route: 065
     Dates: start: 2005
  11. BURINEX [Concomitant]
     Active Substance: BUMETANIDE
     Route: 048
  12. ALDACTONE [Concomitant]
     Active Substance: SPIRONOLACTONE
     Route: 048
     Dates: start: 20140512
  13. ABIRATERONE ACETATE [Suspect]
     Active Substance: ABIRATERONE ACETATE
     Indication: PROSTATE CANCER METASTATIC
     Route: 048
     Dates: start: 20140212, end: 20140510
  14. ASAFLOW [Concomitant]
     Active Substance: ASPIRIN
     Route: 065
  15. BISOPROLOL [Concomitant]
     Active Substance: BISOPROLOL
     Route: 065
  16. BURINEX [Concomitant]
     Active Substance: BUMETANIDE
     Route: 048
     Dates: start: 20140510, end: 20140512
  17. ASAFLOW [Concomitant]
     Active Substance: ASPIRIN
     Route: 065
  18. ALDACTONE [Concomitant]
     Active Substance: SPIRONOLACTONE
     Route: 048
     Dates: start: 20140507, end: 20140508
  19. LEUPROLIDE ACETATE. [Suspect]
     Active Substance: LEUPROLIDE ACETATE
     Indication: PROSTATE CANCER METASTATIC
     Route: 058
     Dates: start: 20121109
  20. BURINEX [Concomitant]
     Active Substance: BUMETANIDE
     Route: 048
     Dates: start: 20140513
  21. LASIX [Concomitant]
     Active Substance: FUROSEMIDE
     Route: 042
     Dates: start: 20140506, end: 20140507
  22. FLOXAPEN [Concomitant]
     Active Substance: FLUCLOXACILLIN
     Route: 042
     Dates: start: 20140430, end: 20140502
  23. ABIRATERONE ACETATE [Suspect]
     Active Substance: ABIRATERONE ACETATE
     Indication: PROSTATE CANCER METASTATIC
     Route: 048
     Dates: start: 20140919, end: 20141124
  24. BELSAR (OLMESARTAN MEDOXOMIL) [Concomitant]
     Route: 065
  25. PARACETAMOL [Concomitant]
     Active Substance: ACETAMINOPHEN
     Route: 042
     Dates: start: 20140430, end: 20140511
  26. VOLTAREN [Concomitant]
     Active Substance: DICLOFENAC SODIUM
     Route: 042
     Dates: start: 20140430, end: 20140506

REACTIONS (11)
  - Diabetes mellitus inadequate control [Recovered/Resolved]
  - Arthritis [Not Recovered/Not Resolved]
  - Anaemia [Not Recovered/Not Resolved]
  - Anuria [Recovered/Resolved]
  - Atrial fibrillation [Not Recovered/Not Resolved]
  - Hypokalaemia [Recovered/Resolved]
  - Generalised oedema [Recovered/Resolved]
  - Gastric ulcer [Recovered/Resolved]
  - Bursitis infective [Recovered/Resolved]
  - Hypocalcaemia [Recovered/Resolved]
  - Gouty arthritis [Not Recovered/Not Resolved]

NARRATIVE: CASE EVENT DATE: 20140307
